FAERS Safety Report 18310723 (Version 3)
Quarter: 2020Q4

REPORT INFORMATION
  Report Type: Spontaneous
  Country: US (occurrence: US)
  Receive Date: 20200925
  Receipt Date: 20201116
  Transmission Date: 20210113
  Serious: Yes (Death, Life-Threatening, Hospitalization, Other)
  Sender: FDA-Public Use
  Company Number: US-AMGEN-USASP2020154907

PATIENT
  Age: 64 Year
  Sex: Male

DRUGS (3)
  1. SULFASALAZINE. [Concomitant]
     Active Substance: SULFASALAZINE
     Dosage: UNK
  2. LEFLUNOMIDE. [Concomitant]
     Active Substance: LEFLUNOMIDE
     Dosage: UNK
  3. ENBREL [Suspect]
     Active Substance: ETANERCEPT
     Indication: RHEUMATOID ARTHRITIS
     Dosage: 50 MILLIGRAM, QWK
     Route: 058
     Dates: start: 202003

REACTIONS (17)
  - White blood cell disorder [Unknown]
  - Renal failure [Unknown]
  - Cardiac failure [Unknown]
  - Nasal congestion [Unknown]
  - Asthenia [Unknown]
  - Sepsis [Unknown]
  - Cough [Unknown]
  - Diarrhoea [Unknown]
  - Adverse event [Unknown]
  - Multiple organ dysfunction syndrome [Unknown]
  - Immune system disorder [Unknown]
  - Death [Fatal]
  - Respiratory failure [Unknown]
  - Pyrexia [Unknown]
  - Pancytopenia [Unknown]
  - Hypotension [Unknown]
  - Shoulder deformity [Recovering/Resolving]

NARRATIVE: CASE EVENT DATE: 2020
